FAERS Safety Report 8844153 (Version 1)
Quarter: 2012Q4

REPORT INFORMATION
  Report Type: Report from Study
  Country: NL (occurrence: NL)
  Receive Date: 20121017
  Receipt Date: 20121017
  Transmission Date: 20130627
  Serious: Yes (Other)
  Sender: FDA-Public Use
  Company Number: NL-US-EMD SERONO, INC.-7165400

PATIENT
  Age: 54 Year
  Sex: Female
  Weight: 52 kg

DRUGS (9)
  1. REBIF [Suspect]
     Indication: MULTIPLE SCLEROSIS
     Route: 058
     Dates: start: 20120903
  2. REBIF [Suspect]
     Route: 058
  3. REBIF [Suspect]
     Route: 058
  4. PARACETAMOL [Concomitant]
     Indication: PAIN
     Route: 048
  5. LORAZEPAM [Concomitant]
     Indication: INSOMNIA
     Route: 048
  6. NAPROXEN [Concomitant]
     Indication: PAIN
     Route: 048
  7. METOPROLOL [Concomitant]
     Indication: CARDIAC DISORDER
     Route: 048
     Dates: start: 2005
  8. RANITIDINE [Concomitant]
     Indication: ABDOMINAL DISCOMFORT
     Route: 048
  9. BETA BLOCKERS [Concomitant]
     Indication: ARRHYTHMIA

REACTIONS (13)
  - Cardiomyopathy [Unknown]
  - Chest pain [Not Recovered/Not Resolved]
  - Palpitations [Not Recovered/Not Resolved]
  - Sensation of heaviness [Not Recovered/Not Resolved]
  - Insomnia [Not Recovered/Not Resolved]
  - Abdominal pain upper [Not Recovered/Not Resolved]
  - Paraesthesia [Not Recovered/Not Resolved]
  - Influenza like illness [Not Recovered/Not Resolved]
  - Injection site reaction [Not Recovered/Not Resolved]
  - Headache [Not Recovered/Not Resolved]
  - Myalgia [Not Recovered/Not Resolved]
  - Arthralgia [Not Recovered/Not Resolved]
  - Fatigue [Not Recovered/Not Resolved]
